FAERS Safety Report 6371967-X (Version None)
Quarter: 2009Q3

REPORT INFORMATION
  Report Type: 
  Country: None (occurrence: None)
  Receive Date: 20090917
  Receipt Date: 20090904
  Transmission Date: 20100115
  Serious: Yes (Life-Threatening, Hospitalization)
  Sender: FDA-Public Use
  Company Number: ADR17222009

PATIENT
  Age: 21 Year
  Sex: Female

DRUGS (3)
  1. CITALOPRAM HYDROBROMIDE [Suspect]
     Dosage: 40 MG ORAL USE
     Route: 048
  2. CO-CODAMOL [Concomitant]
  3. EFFEXOR 38 MG [Concomitant]

REACTIONS (13)
  - BLOOD CREATINE PHOSPHOKINASE INCREASED [None]
  - BODY TEMPERATURE INCREASED [None]
  - ELECTROCARDIOGRAM QRS COMPLEX PROLONGED [None]
  - ELECTROCARDIOGRAM QT PROLONGED [None]
  - GRAND MAL CONVULSION [None]
  - HYPOXIA [None]
  - INTENTIONAL SELF-INJURY [None]
  - LOSS OF CONSCIOUSNESS [None]
  - MULTIPLE DRUG OVERDOSE INTENTIONAL [None]
  - PYREXIA [None]
  - SINUS TACHYCARDIA [None]
  - SKIN LACERATION [None]
  - WHITE BLOOD CELL COUNT INCREASED [None]
